FAERS Safety Report 13265377 (Version 2)
Quarter: 2017Q1

REPORT INFORMATION
  Report Type: Spontaneous
  Country: US (occurrence: US)
  Receive Date: 20170223
  Receipt Date: 20170324
  Transmission Date: 20170428
  Serious: Yes (Hospitalization)
  Sender: FDA-Public Use
  Company Number: US-TAIHO ONCOLOGY INC-EU-2017-00299

PATIENT
  Age: 66 Year
  Sex: Male

DRUGS (5)
  1. SPIRONOLACTONE. [Concomitant]
     Active Substance: SPIRONOLACTONE
     Dosage: NI
  2. LONSURF [Suspect]
     Active Substance: TIPIRACIL HYDROCHLORIDE\TRIFLURIDINE
     Indication: COLON CANCER
     Route: 048
     Dates: start: 20170207
  3. BENAZEPRIL HYDROCHLORIDE. [Concomitant]
     Active Substance: BENAZEPRIL HYDROCHLORIDE
     Dosage: NI
  4. PANTOPRAZOLE SODIUM SESQUIHYDRATE [Concomitant]
     Active Substance: PANTOPRAZOLE SODIUM
     Dosage: NI
  5. CARVEDILOL. [Concomitant]
     Active Substance: CARVEDILOL
     Dosage: NI

REACTIONS (11)
  - Cough [Unknown]
  - Malaise [Unknown]
  - Diarrhoea [Unknown]
  - Epistaxis [Unknown]
  - Device related infection [Unknown]
  - Vomiting [Unknown]
  - Swelling [Unknown]
  - Nausea [Unknown]
  - Abdominal pain upper [Unknown]
  - Fatigue [Unknown]
  - Dyspnoea [Unknown]

NARRATIVE: CASE EVENT DATE: 201702
